FAERS Safety Report 6980101-4 (Version None)
Quarter: 2010Q3

REPORT INFORMATION
  Report Type: 
  Country: None (occurrence: None)
  Receive Date: 20100909
  Receipt Date: 20100903
  Transmission Date: 20110219
  Serious: Yes (Hospitalization)
  Sender: FDA-Public Use
  Company Number: CIP10002124

PATIENT
  Sex: Male

DRUGS (11)
  1. RISEDRONATE SODIUM [Suspect]
     Indication: OSTEOPOROSIS
     Dosage: 17.5 MG ONCE A WEEK, ORAL, 17.5 MG ONCE A WEEKLY, ORAL
     Route: 048
     Dates: start: 20081005, end: 20090814
  2. RISEDRONATE SODIUM [Suspect]
     Indication: OSTEOPOROSIS
     Dosage: 17.5 MG ONCE A WEEK, ORAL, 17.5 MG ONCE A WEEKLY, ORAL
     Route: 048
     Dates: start: 20090822
  3. SINGULAIR [Concomitant]
  4. ROCALTROL [Concomitant]
  5. ANGINAL /00042901/ (DIPYRIDAMOLE) [Concomitant]
  6. SALMETEROL/FLUTICASONPROPIONAAT (FLUTICASONE PROPIONATE, SALMETEROL XI [Concomitant]
  7. SALON (ALDIOXA) [Concomitant]
  8. LENDORM [Concomitant]
  9. TERSIGAN (OXITROPIUM BROMIDE) [Concomitant]
  10. CANDESARTAN CILEXETIL [Concomitant]
  11. HACHIMIJIO-GAN (HERBAL EXTRACT NOS) [Concomitant]

REACTIONS (2)
  - CONSTIPATION [None]
  - INGUINAL HERNIA [None]
